FAERS Safety Report 7162467-8 (Version None)
Quarter: 2010Q4

REPORT INFORMATION
  Report Type: 
  Country: None (occurrence: None)
  Receive Date: 20101210
  Receipt Date: 20101210
  Transmission Date: 20110411
  Serious: Yes (Other)
  Sender: FDA-Public Use
  Company Number: None

PATIENT
  Age: 35 Year
  Sex: Male
  Weight: 97.5234 kg

DRUGS (2)
  1. LYRICA [Suspect]
     Indication: TYPE 2 DIABETES MELLITUS
     Dosage: 1 CAPSULE DAILY ORAL
     Route: 048
  2. LYRICA [Suspect]
     Indication: TYPE 2 DIABETES MELLITUS
     Dosage: 1 CAPSULE DAILY ORAL
     Route: 048

REACTIONS (8)
  - ASTHENIA [None]
  - DIZZINESS [None]
  - HYPERHIDROSIS [None]
  - NEUROPATHY PERIPHERAL [None]
  - NIGHT SWEATS [None]
  - PAIN IN EXTREMITY [None]
  - SOMNOLENCE [None]
  - SYNCOPE [None]
